FAERS Safety Report 7438173-9 (Version None)
Quarter: 2011Q2

REPORT INFORMATION
  Report Type: 
  Country: None (occurrence: None)
  Receive Date: 20110421
  Receipt Date: 20110421
  Transmission Date: 20111010
  Serious: Yes (Hospitalization)
  Sender: FDA-Public Use
  Company Number: None

PATIENT
  Sex: Female
  Weight: 69.4003 kg

DRUGS (3)
  1. YASMIN [Suspect]
     Indication: MENSTRUAL CYCLE MANAGEMENT
     Dosage: 1 TAB PO DAILY
     Route: 048
     Dates: start: 20070501, end: 20110401
  2. YASMIN [Suspect]
     Indication: MOOD SWINGS
     Dosage: 1 TAB PO DAILY
     Route: 048
     Dates: start: 20070501, end: 20110401
  3. YASMIN [Suspect]
     Indication: ACNE
     Dosage: 1 TAB PO DAILY
     Route: 048
     Dates: start: 20070501, end: 20110401

REACTIONS (1)
  - DEEP VEIN THROMBOSIS [None]
